FAERS Safety Report 5952181-6 (Version None)
Quarter: 2008Q4

REPORT INFORMATION
  Report Type: 
  Country: None (occurrence: None)
  Receive Date: 20081113
  Receipt Date: 20080820
  Transmission Date: 20090506
  Serious: No
  Sender: FDA-Public Use
  Company Number: A0743533A

PATIENT
  Age: 77 Year
  Sex: Male

DRUGS (7)
  1. COREG [Suspect]
     Dosage: 25MG TWICE PER DAY
     Route: 048
     Dates: start: 20000801
  2. RECOMBINATE [Concomitant]
  3. AMARYL [Concomitant]
  4. VASOTEC [Concomitant]
  5. DIGOXIN [Concomitant]
  6. LASIX [Concomitant]
  7. POTASSIUM CHLORIDE [Concomitant]

REACTIONS (1)
  - PLATELET COUNT DECREASED [None]
